FAERS Safety Report 8385711-8 (Version None)
Quarter: 2012Q2

REPORT INFORMATION
  Report Type: 
  Country: None (occurrence: None)
  Receive Date: 20120523
  Receipt Date: 20120510
  Transmission Date: 20120825
  Serious: Yes (Death)
  Sender: FDA-Public Use
  Company Number: 201103009

PATIENT
  Age: 79 Year
  Sex: Female
  Weight: 80.7403 kg

DRUGS (16)
  1. XIAFLEX [Suspect]
     Indication: DUPUYTREN'S CONTRACTURE
     Dosage: 1 IN 1 D, INTRALESINOAL
     Dates: start: 20110214, end: 20110214
  2. DILTIAZEM HCL [Concomitant]
  3. PRESERVISION EYE VITAMIN AND MINERAL (TETRYZOLINE HYDROCHLORIDE) [Concomitant]
  4. FISH OIL OMEGA 3 (EICOSAPENTAENOIC ACID) [Concomitant]
  5. SERTRALINE HCL (SERTRALINE HYDROCHLORIDE) [Concomitant]
  6. LIDOCAINE [Concomitant]
  7. COUMADIN [Concomitant]
  8. LUTEIN (XANTOFYL) [Concomitant]
  9. VITAMIN D [Concomitant]
  10. LEVOTHYROID (LEVOTHYROXINE) [Concomitant]
  11. METROPOLOL (METOPROLOL) [Concomitant]
  12. MARCAINE [Concomitant]
  13. DIGOXIN [Concomitant]
  14. MULTIVITAMIN [Concomitant]
  15. MAGNESIUM OXIDE (MAGNSIUM OXIDE) [Concomitant]
  16. CALCIUM 600+D (ERGOCALCIFEROL) [Concomitant]

REACTIONS (5)
  - SOFT TISSUE DISORDER [None]
  - MYOCARDIAL INFARCTION [None]
  - ECCHYMOSIS [None]
  - DISCOMFORT [None]
  - SWELLING [None]
